FAERS Safety Report 5745687-6 (Version None)
Quarter: 2008Q2

REPORT INFORMATION
  Report Type: 
  Country: None (occurrence: None)
  Receive Date: 20080521
  Receipt Date: 20080425
  Transmission Date: 20081010
  Serious: No
  Sender: FDA-Public Use
  Company Number: US-BOEHRINGER INGELHEIM GMBH, GERMANY-2008-BP-06635BP

PATIENT
  Sex: Male

DRUGS (2)
  1. COMBIVENT [Suspect]
     Indication: ASTHMA
     Dosage: 2 PUFFS EVERY 6 HOURS PRN
     Route: 055
     Dates: start: 20080419
  2. ADVAIR DISKUS 100/50 [Concomitant]

REACTIONS (1)
  - RASH [None]
